FAERS Safety Report 14223224 (Version 2)
Quarter: 2018Q1

REPORT INFORMATION
  Report Type: Spontaneous
  Country: JP (occurrence: JP)
  Receive Date: 20171124
  Receipt Date: 20180103
  Transmission Date: 20180508
  Serious: Yes (Other)
  Sender: FDA-Public Use
  Company Number: JP-APOTEX-2017AP021621

PATIENT
  Age: 83 Year
  Sex: Female

DRUGS (1)
  1. PAXIL [Suspect]
     Active Substance: PAROXETINE HYDROCHLORIDE
     Indication: PRODUCT USED FOR UNKNOWN INDICATION
     Dosage: 40 MG, QD
     Route: 048
     Dates: end: 201711

REACTIONS (8)
  - Pleural effusion [Unknown]
  - Hypoglycaemia [Unknown]
  - Hypothermia [Unknown]
  - Eating disorder [Unknown]
  - Pneumonia [Unknown]
  - Hyponatraemia [Unknown]
  - Electrolyte depletion [Unknown]
  - Malaise [Unknown]

NARRATIVE: CASE EVENT DATE: 201711
